FAERS Safety Report 6298826-5 (Version None)
Quarter: 2009Q3

REPORT INFORMATION
  Report Type: 
  Country: None (occurrence: None)
  Receive Date: 20090806
  Receipt Date: 20090727
  Transmission Date: 20100115
  Serious: Yes (Hospitalization)
  Sender: FDA-Public Use
  Company Number: GB-WYE-H10409109

PATIENT
  Age: 83 Year
  Sex: Male
  Weight: 71 kg

DRUGS (4)
  1. PANTOPRAZOLE SODIUM [Suspect]
     Route: 048
  2. SIMVASTATIN [Concomitant]
     Indication: HYPERLIPIDAEMIA
     Dosage: 20 MG, FREQUENCY UNSPECIFIED
     Route: 048
  3. ATENOLOL [Concomitant]
     Indication: HYPERTENSION
     Dosage: 40 MG, FREQUENCY UNSPECIFIED
     Route: 048
  4. CLOPIDOGREL [Concomitant]
     Dosage: 75 MG, FREQUENCY UNSPECIFIED
     Route: 048

REACTIONS (1)
  - INAPPROPRIATE ANTIDIURETIC HORMONE SECRETION [None]
